FAERS Safety Report 21342285 (Version 1)
Quarter: 2022Q3

REPORT INFORMATION
  Report Type: Spontaneous
  Country: US (occurrence: None)
  Receive Date: 20220916
  Receipt Date: 20220916
  Transmission Date: 20221027
  Serious: Yes (unspecified)
  Sender: FDA-Public Use
  Company Number: None

PATIENT
  Age: 79 Year
  Sex: Male

DRUGS (1)
  1. HEPARIN SODIUM [Suspect]
     Active Substance: HEPARIN SODIUM
     Indication: Thrombosis prophylaxis
     Dates: start: 20220904, end: 20220905

REACTIONS (8)
  - Heparin-induced thrombocytopenia [None]
  - Anaemia [None]
  - Red blood cell transfusion [None]
  - Renal atrophy [None]
  - Iatrogenic injury [None]
  - Drug hypersensitivity [None]
  - Immune thrombocytopenia [None]
  - Haemolytic uraemic syndrome [None]

NARRATIVE: CASE EVENT DATE: 20220913
